FAERS Safety Report 24200281 (Version 3)
Quarter: 2024Q4

REPORT INFORMATION
  Report Type: Spontaneous
  Country: CA (occurrence: CA)
  Receive Date: 20240812
  Receipt Date: 20241227
  Transmission Date: 20250114
  Serious: Yes (Hospitalization, Other)
  Sender: PFIZER
  Company Number: CA-PFIZER INC-202400087837

PATIENT
  Age: 69 Year
  Sex: Male

DRUGS (7)
  1. RUXIENCE [Suspect]
     Active Substance: RITUXIMAB-PVVR
     Indication: Autoimmune disorder
     Dosage: 1 DF, 1000MG IV Q 2 WEEKS X 2 DOSES THEN 1000MG IV Q 6 MONTHS
     Route: 042
     Dates: start: 20240123
  2. RUXIENCE [Suspect]
     Active Substance: RITUXIMAB-PVVR
     Dosage: 1 DF, 1000MG IV Q 2 WEEKS X 2 DOSES THEN 1000MG IV Q 6 MONTHS
     Route: 042
     Dates: start: 20240206
  3. RUXIENCE [Suspect]
     Active Substance: RITUXIMAB-PVVR
     Dosage: 1000 MG, SUBSEQUENT DAY 1 (1000MG IV Q 2 WEEKS X 2 DOSES THEN 1000MG IV Q 6 MONTHS 1 DF)
     Route: 042
     Dates: start: 20240807
  4. BISOPROLOL [Concomitant]
     Active Substance: BISOPROLOL
     Indication: Blood pressure abnormal
     Dosage: UNK
  5. DIPHENHYDRAMINE [Concomitant]
     Active Substance: DIPHENHYDRAMINE
     Indication: Premedication
     Dosage: UNK
     Dates: start: 20240807, end: 20240807
  6. METHYLPREDNISOLONE [Concomitant]
     Active Substance: METHYLPREDNISOLONE
     Indication: Premedication
     Dosage: UNK
     Dates: start: 20240807, end: 20240807
  7. RAMIPRIL [Concomitant]
     Active Substance: RAMIPRIL
     Indication: Blood pressure abnormal
     Dosage: UNK

REACTIONS (6)
  - Pneumonia aspiration [Recovering/Resolving]
  - Tracheostomy [Unknown]
  - Weight decreased [Recovering/Resolving]
  - Dysphagia [Not Recovered/Not Resolved]
  - Off label use [Unknown]
  - Incorrect product administration duration [Unknown]

NARRATIVE: CASE EVENT DATE: 20240101
